FAERS Safety Report 11152517 (Version 1)
Quarter: 2015Q2

REPORT INFORMATION
  Report Type: Spontaneous
  Country: AT (occurrence: AT)
  Receive Date: 20150601
  Receipt Date: 20150601
  Transmission Date: 20150821
  Serious: Yes (Hospitalization, Other)
  Sender: FDA-Public Use
  Company Number: AT-ACTAVIS-2015-10562

PATIENT
  Age: 24 Year
  Sex: Male

DRUGS (3)
  1. BETAMETHASONE DIPROPIONATE (AMALLC) [Suspect]
     Active Substance: BETAMETHASONE DIPROPIONATE
     Indication: PSORIASIS
     Dosage: 200 G PER WEEK, APPLIED DAILY DURING EXACERBATIONS
     Route: 003
  2. METHOTREXATE [Concomitant]
     Active Substance: METHOTREXATE
     Indication: PSORIASIS
     Dosage: UNK
     Route: 065
  3. ACITRETIN. [Concomitant]
     Active Substance: ACITRETIN
     Indication: PSORIASIS
     Dosage: UNK
     Route: 065

REACTIONS (4)
  - Cushing^s syndrome [Recovering/Resolving]
  - Secondary adrenocortical insufficiency [Recovering/Resolving]
  - Overdose [Recovering/Resolving]
  - Incorrect drug administration duration [Recovering/Resolving]
